FAERS Safety Report 13256806 (Version 1)
Quarter: 2017Q1

REPORT INFORMATION
  Report Type: Other
  Country: FR (occurrence: FR)
  Receive Date: 20170221
  Receipt Date: 20170221
  Transmission Date: 20170428
  Serious: Yes (Hospitalization)
  Sender: FDA-Public Use
  Company Number: FR-EMCURE PHARMS-2017HTG00030

PATIENT
  Age: 68 Year
  Sex: Male

DRUGS (4)
  1. ALKERAN [Suspect]
     Active Substance: MELPHALAN
     Indication: B-CELL LYMPHOMA
     Dosage: 260 G, ONCE
     Route: 042
     Dates: start: 20160215, end: 20160215
  2. CYTARABINE. [Suspect]
     Active Substance: CYTARABINE
     Indication: B-CELL LYMPHOMA
     Dosage: 750 MG, 1X/DAY
     Route: 042
     Dates: start: 20160211, end: 20160214
  3. ETOPOSIDE. [Suspect]
     Active Substance: ETOPOSIDE
     Indication: B-CELL LYMPHOMA
     Dosage: 375 MG, 1X/DAY
     Route: 042
     Dates: start: 20160211, end: 20160214
  4. BICNU [Suspect]
     Active Substance: CARMUSTINE
     Indication: B-CELL LYMPHOMA
     Dosage: 560 MG, ONCE
     Route: 042
     Dates: start: 20160210, end: 20160210

REACTIONS (4)
  - Interstitial lung disease [Recovered/Resolved]
  - Rhinovirus infection [Unknown]
  - Respiratory distress [None]
  - Bone marrow failure [Recovered/Resolved]

NARRATIVE: CASE EVENT DATE: 20160208
